FAERS Safety Report 6100246-0 (Version None)
Quarter: 2009Q1

REPORT INFORMATION
  Report Type: 
  Country: None (occurrence: None)
  Receive Date: 20090302
  Receipt Date: 20090302
  Transmission Date: 20090719
  Serious: Yes (Disabling, Other)
  Sender: FDA-Public Use
  Company Number: None

PATIENT
  Age: 45 Year
  Sex: Female
  Weight: 63.5036 kg

DRUGS (1)
  1. MIRENA [Suspect]
     Dates: start: 20081224, end: 20090301

REACTIONS (5)
  - ALOPECIA [None]
  - CHILLS [None]
  - HAEMORRHAGE [None]
  - MUSCLE SPASMS [None]
  - VISUAL IMPAIRMENT [None]
